FAERS Safety Report 15368935 (Version 1)
Quarter: 2018Q3

REPORT INFORMATION
  Report Type: Spontaneous
  Country: US (occurrence: US)
  Receive Date: 20180911
  Receipt Date: 20180911
  Transmission Date: 20181010
  Serious: Yes (Other)
  Sender: FDA-Public Use
  Company Number: US-B.I. PHARMACEUTICALS,INC./RIDGEFIELD-2018-BI-045083

PATIENT
  Age: 63 Year
  Sex: Male

DRUGS (5)
  1. INSULINA HUMALOG [Concomitant]
     Indication: TYPE 2 DIABETES MELLITUS
     Dosage: PRN USING SLIDING SCALE;  FORMULATION: SUBCUTANEOUS
     Route: 058
     Dates: start: 2008
  2. JANUMET [Concomitant]
     Active Substance: METFORMIN HYDROCHLORIDE\SITAGLIPTIN PHOSPHATE
     Indication: TYPE 2 DIABETES MELLITUS
     Dosage: FORM STRENGTH: 50?1000MG; FORMULATION: TABLET; DAILY DOSE: 100?2000MG
     Route: 048
     Dates: start: 2013
  3. TOUJEO [Concomitant]
     Active Substance: INSULIN GLARGINE
     Indication: TYPE 2 DIABETES MELLITUS
     Dosage: FORM STRENGTH: 300UNITS/ML
     Route: 058
     Dates: start: 2013
  4. BYDUREON [Concomitant]
     Active Substance: EXENATIDE
     Indication: TYPE 2 DIABETES MELLITUS
     Dosage: FORM STRENGTH: 2MG/VIAL; FORMULATION: SUBCUTANEOUS;
     Route: 058
     Dates: start: 201801
  5. JARDIANCE [Suspect]
     Active Substance: EMPAGLIFLOZIN
     Indication: TYPE 2 DIABETES MELLITUS
     Route: 048
     Dates: start: 2016

REACTIONS (1)
  - Dementia [Not Recovered/Not Resolved]

NARRATIVE: CASE EVENT DATE: 201801
